FAERS Safety Report 8312389-1 (Version None)
Quarter: 2012Q2

REPORT INFORMATION
  Report Type: 
  Country: None (occurrence: None)
  Receive Date: 20120425
  Receipt Date: 20120423
  Transmission Date: 20120825
  Serious: Yes (Hospitalization)
  Sender: FDA-Public Use
  Company Number: ZA-AMGEN-ZAFCT2012023417

PATIENT
  Age: 88 Year
  Sex: Male
  Weight: 65 kg

DRUGS (11)
  1. DENOSUMAB [Suspect]
     Indication: PROSTATE CANCER
     Dosage: 2 ML, Q4WK
     Route: 058
     Dates: start: 20110207
  2. XALATAN [Concomitant]
     Dosage: UNK UNK, QD
  3. INDAPAMIDE [Concomitant]
     Dosage: 1.5 MG, UNK
  4. ARCOXIA [Concomitant]
  5. FORMOTEROL FUMARATE [Concomitant]
  6. PREDNISONE TAB [Concomitant]
     Dosage: 15 MG, UNK
  7. TAMSUL [Concomitant]
  8. SULFASALAZINE [Concomitant]
     Dosage: UNK UNK, BID
  9. ZOLPIDEM [Concomitant]
     Dosage: 5 MG, UNK
  10. PULMICORT [Concomitant]
  11. ZARTAN [Concomitant]
     Dosage: 100 MG, UNK

REACTIONS (1)
  - COR PULMONALE [None]
